FAERS Safety Report 9852071 (Version 1)
Quarter: 2014Q1

REPORT INFORMATION
  Report Type: Spontaneous
  Country: US (occurrence: None)
  Receive Date: 20140127
  Receipt Date: 20140127
  Transmission Date: 20141002
  Serious: Yes (Other)
  Sender: FDA-Public Use
  Company Number: 2014P1000403

PATIENT
  Age: 62 Year
  Sex: Male

DRUGS (15)
  1. BUPROPION [Suspect]
     Route: 048
  2. OXYCODONE [Suspect]
     Indication: PAIN
     Route: 048
  3. TRAMADOL [Suspect]
     Indication: PAIN
     Route: 048
  4. TRAZODONE [Suspect]
     Indication: INSOMNIA
     Route: 048
  5. HEPARIN [Concomitant]
  6. RANITIDINE [Concomitant]
  7. DOCUSATE [Concomitant]
  8. ACETAMINOPHEN [Concomitant]
  9. POLYETHYLENE [Concomitant]
  10. GLYCOL [Concomitant]
  11. CALCIUM [Concomitant]
  12. VITAMIN D [Concomitant]
  13. THIAMINE [Concomitant]
  14. FOLATE [Concomitant]
  15. MULTIVITAMIN [Concomitant]

REACTIONS (20)
  - Fall [None]
  - Humerus fracture [None]
  - Insomnia [None]
  - Confusional state [None]
  - Disorientation [None]
  - Anxiety [None]
  - Hallucination, visual [None]
  - Restlessness [None]
  - Urinary incontinence [None]
  - Tachycardia [None]
  - Hypertension [None]
  - Tachypnoea [None]
  - Myoclonus [None]
  - Tremor [None]
  - Muscle rigidity [None]
  - Mydriasis [None]
  - Hyponatraemia [None]
  - Leukocytosis [None]
  - Hyperhidrosis [None]
  - Serotonin syndrome [None]
